FAERS Safety Report 8025102-2 (Version None)
Quarter: 2012Q1

REPORT INFORMATION
  Report Type: 
  Country: None (occurrence: None)
  Receive Date: 20120105
  Receipt Date: 20120103
  Transmission Date: 20120608
  Serious: Yes (Hospitalization)
  Sender: FDA-Public Use
  Company Number: FR-ROCHE-1027248

PATIENT
  Age: 67 Year
  Sex: Female

DRUGS (3)
  1. AVASTIN [Suspect]
     Indication: BREAST CANCER
     Dosage: 25 MG/ML, RECEIVED 4 CYCLES
     Route: 042
     Dates: start: 20110921, end: 20111201
  2. ARIXTRA [Concomitant]
     Dates: start: 20111209
  3. TAXOL [Suspect]
     Indication: BREAST CANCER
     Dosage: RECEIVED 4 CYCLES
     Dates: start: 20110921

REACTIONS (3)
  - RECTAL HAEMORRHAGE [None]
  - PULMONARY EMBOLISM [None]
  - HAEMATOMA [None]
